FAERS Safety Report 6702277-6 (Version None)
Quarter: 2010Q2

REPORT INFORMATION
  Report Type: 
  Country: None (occurrence: None)
  Receive Date: 20100429
  Receipt Date: 20100412
  Transmission Date: 20101027
  Serious: Yes (Other)
  Sender: FDA-Public Use
  Company Number: PHHY2010BR03492

PATIENT
  Age: 80 Year
  Sex: Female
  Weight: 35 kg

DRUGS (1)
  1. EXELON [Suspect]
     Indication: DEMENTIA ALZHEIMER'S TYPE
     Dosage: UNK
     Route: 048
     Dates: start: 20000101

REACTIONS (6)
  - ABNORMAL BEHAVIOUR [None]
  - HALLUCINATION [None]
  - MOUTH ULCERATION [None]
  - NAUSEA [None]
  - NERVOUSNESS [None]
  - VOMITING [None]
